FAERS Safety Report 10019186 (Version 3)
Quarter: 2014Q2

REPORT INFORMATION
  Report Type: Report from Study
  Country: JP (occurrence: JP)
  Receive Date: 20140318
  Receipt Date: 20140423
  Transmission Date: 20141212
  Serious: Yes (Hospitalization)
  Sender: FDA-Public Use
  Company Number: JP-B.I. PHARMACEUTICALS,INC./RIDGEFIELD-2014-BI-10879NB

PATIENT
  Age: 82 Year
  Sex: Male
  Weight: 63.3 kg

DRUGS (8)
  1. PRAZAXA [Suspect]
     Indication: CEREBROVASCULAR ACCIDENT PROPHYLAXIS
     Dosage: 220 MG
     Route: 048
     Dates: start: 20120723, end: 20130829
  2. PRAZAXA [Suspect]
     Dosage: 220 MG
     Route: 048
     Dates: start: 20130907
  3. MEXIBAL / MEXILETINE HYDROCHLORIDE [Concomitant]
     Indication: ATRIAL FIBRILLATION
     Dosage: 200 MG
     Route: 048
  4. MUCOSTA / REBAMIPIDE [Concomitant]
     Indication: PROPHYLAXIS
     Dosage: 200 MG
     Route: 048
  5. LIVALO / PITAVASTATIN CALCIUM [Concomitant]
     Dosage: 2 MG
     Route: 048
  6. NATRIX / INDAPAMIDE [Concomitant]
     Indication: HYPERTENSION
     Dosage: DAILY DOSE: 1TIME/1 DAY
     Route: 048
  7. MICAMLO / TELMISARTAN_AMLODIPINE_BESILATE COMBINED DRUG [Concomitant]
     Indication: HYPERTENSION
     Dosage: DAILY DOSE: 1TIME/1 DAY
     Route: 048
  8. BAYASPIRIN / ASPIRIN [Concomitant]
     Indication: ATRIAL FIBRILLATION
     Dosage: 100 MG
     Route: 048

REACTIONS (1)
  - Cerebral infarction [Recovered/Resolved]
